FAERS Safety Report 6119868-6 (Version None)
Quarter: 2009Q1

REPORT INFORMATION
  Report Type: 
  Country: None (occurrence: None)
  Receive Date: 20090316
  Receipt Date: 20090302
  Transmission Date: 20090719
  Serious: Yes (Death, Other)
  Sender: FDA-Public Use
  Company Number: FR-ROCHE-595603

PATIENT
  Age: 79 Year
  Sex: Female
  Weight: 60 kg

DRUGS (6)
  1. MIRCERA [Suspect]
     Route: 065
     Dates: start: 20080930, end: 20080930
  2. APROVEL [Concomitant]
     Route: 048
     Dates: start: 20050101
  3. TEMERIT [Concomitant]
     Route: 048
     Dates: start: 20050101
  4. LASIX [Concomitant]
     Dosage: DRUG REPORTED AS LASILIX SPECIAL
     Route: 048
     Dates: start: 20050101
  5. PRAVASTATIN [Concomitant]
     Route: 048
     Dates: start: 20050101
  6. ZYLORIC [Concomitant]
     Route: 048
     Dates: start: 20050101

REACTIONS (3)
  - DERMATITIS EXFOLIATIVE [None]
  - DERMATOSIS [None]
  - MYOCARDIAL INFARCTION [None]
